FAERS Safety Report 8879092 (Version 1)
Quarter: 2012Q4

REPORT INFORMATION
  Report Type: Spontaneous
  Country: US (occurrence: None)
  Receive Date: 20121031
  Receipt Date: 20121031
  Transmission Date: 20130627
  Serious: Yes (Hospitalization)
  Sender: FDA-Public Use
  Company Number: None

PATIENT
  Sex: Male
  Weight: 75 kg

DRUGS (1)
  1. AVASTIN [Suspect]
     Indication: NON-SMALL CELL LUNG CANCER
     Dosage: Q21DAYS
     Route: 042
     Dates: start: 20110302, end: 20120723

REACTIONS (4)
  - Abdominal pain upper [None]
  - Hyperhidrosis [None]
  - Diverticulum intestinal [None]
  - Diverticulitis [None]
